FAERS Safety Report 8187325-1 (Version None)
Quarter: 2012Q1

REPORT INFORMATION
  Report Type: 
  Country: None (occurrence: None)
  Receive Date: 20120302
  Receipt Date: 20120220
  Transmission Date: 20120608
  Serious: Yes (Hospitalization)
  Sender: FDA-Public Use
  Company Number: 2012SP009836

PATIENT
  Age: 81 Year
  Sex: Female

DRUGS (12)
  1. VASTAREL [Concomitant]
  2. ACTONEL [Concomitant]
  3. PANOS [Concomitant]
  4. DILTIAZEM HCL [Concomitant]
  5. POTASSIUM CHLORIDE [Concomitant]
  6. VOLTAREN [Concomitant]
  7. LYRICA [Concomitant]
  8. DELURSAN [Concomitant]
  9. MIRTAZAPINE [Suspect]
     Indication: PRODUCT USED FOR UNKNOWN INDICATION
     Dosage: 15 MG; QD; PO
     Route: 048
     Dates: start: 20120119, end: 20120121
  10. PRAVASTATIN [Concomitant]
  11. ASPIRIN [Concomitant]
  12. ACETAMINOPHEN [Concomitant]

REACTIONS (3)
  - DRY MOUTH [None]
  - NAUSEA [None]
  - NECK PAIN [None]
